FAERS Safety Report 17497947 (Version 3)
Quarter: 2020Q2

REPORT INFORMATION
  Report Type: Report from Study
  Country: IT (occurrence: IT)
  Receive Date: 20200304
  Receipt Date: 20200415
  Transmission Date: 20200713
  Serious: Yes (Other)
  Sender: FDA-Public Use
  Company Number: IT-MYLANLABS-2020M1023024

PATIENT
  Age: 82 Year
  Sex: Female

DRUGS (1)
  1. DONEPEZIL. [Suspect]
     Active Substance: DONEPEZIL
     Indication: MEMORY IMPAIRMENT
     Dosage: 3 DOSAGE FORM, TOTAL
     Route: 048
     Dates: start: 20191216, end: 20191216

REACTIONS (4)
  - Drug abuse [Recovering/Resolving]
  - Vomiting [Recovering/Resolving]
  - Intentional product misuse [Unknown]
  - Dyspnoea [Recovering/Resolving]

NARRATIVE: CASE EVENT DATE: 20191216
